FAERS Safety Report 9265555 (Version 2)
Quarter: 2014Q2

REPORT INFORMATION
  Report Type: Spontaneous
  Country: US (occurrence: US)
  Receive Date: 20130501
  Receipt Date: 20140404
  Transmission Date: 20141212
  Serious: Yes (Hospitalization, Other)
  Sender: FDA-Public Use
  Company Number: US-009507513-1304USA013908

PATIENT
  Sex: Male
  Weight: 101.59 kg

DRUGS (4)
  1. PROPECIA [Suspect]
     Indication: ANDROGENETIC ALOPECIA
     Dosage: 1 MG, UNK
     Route: 048
     Dates: start: 1999, end: 2001
  2. PROPECIA [Suspect]
     Indication: ALOPECIA
     Dosage: 1 MG, QD
     Route: 048
     Dates: start: 20010531, end: 201206
  3. FINASTERIDE [Suspect]
     Indication: ALOPECIA
     Dosage: 1 MG, UNK
     Route: 048
     Dates: start: 1999, end: 2001
  4. FINASTERIDE [Suspect]
     Dosage: 1 MG, UNK
     Route: 048
     Dates: start: 20010531, end: 20120313

REACTIONS (28)
  - Liposuction [Unknown]
  - Lipodystrophy acquired [Unknown]
  - Shoulder operation [Unknown]
  - Sexual dysfunction [Not Recovered/Not Resolved]
  - Erectile dysfunction [Not Recovered/Not Resolved]
  - Gynaecomastia [Unknown]
  - Upper limb fracture [Unknown]
  - Skin papilloma [Not Recovered/Not Resolved]
  - Skin papilloma [Not Recovered/Not Resolved]
  - Skin cryotherapy [Unknown]
  - Melanocytic naevus [Unknown]
  - Scar [Unknown]
  - Solar lentigo [Not Recovered/Not Resolved]
  - Skin cryotherapy [Unknown]
  - Drug dose omission [Not Recovered/Not Resolved]
  - Vasectomy [Unknown]
  - Deafness [Unknown]
  - Vision blurred [Unknown]
  - Feeling abnormal [Unknown]
  - Nocturia [Unknown]
  - Pollakiuria [Not Recovered/Not Resolved]
  - Blood cholesterol increased [Unknown]
  - Scrotal swelling [Recovered/Resolved]
  - Ejaculation disorder [Unknown]
  - Testicular mass [Unknown]
  - Testicular pain [Unknown]
  - Genital disorder male [Unknown]
  - Retrograde ejaculation [Unknown]
